FAERS Safety Report 8554825-1 (Version None)
Quarter: 2012Q3

REPORT INFORMATION
  Report Type: 
  Country: None (occurrence: None)
  Receive Date: 20120731
  Receipt Date: 20120724
  Transmission Date: 20120928
  Serious: Yes (Other)
  Sender: FDA-Public Use
  Company Number: US-BAXTER-2012BAX008343

PATIENT
  Sex: Male
  Weight: 105 kg

DRUGS (14)
  1. RENVELA [Concomitant]
     Indication: BLOOD PHOSPHORUS ABNORMAL
     Route: 048
     Dates: start: 20120514
  2. LEVEMIR [Concomitant]
     Indication: TYPE 1 DIABETES MELLITUS
     Dosage: 50 UNITS
     Route: 058
  3. TORSEMIDE [Concomitant]
     Indication: FLUID RETENTION
     Route: 048
  4. LAMOTRIGINE [Concomitant]
     Route: 048
  5. CARVEDILOL [Concomitant]
     Indication: HYPERTENSION
     Route: 048
  6. HUMALOG [Concomitant]
     Indication: TYPE 1 DIABETES MELLITUS
     Dosage: 90 UNITS
     Route: 058
  7. CALCITRIOL [Concomitant]
     Route: 048
     Dates: start: 20120514, end: 20120618
  8. CALCITRIOL [Concomitant]
     Route: 048
     Dates: start: 20120618
  9. METOPROLOL TARTRATE [Concomitant]
     Indication: HYPERTENSION
     Route: 048
  10. DIANEAL LOW CALCIUM W/ DEXTROSE 1.5% [Suspect]
     Route: 033
     Dates: start: 20120409
  11. DOXYCYCLINE HCL [Concomitant]
     Route: 048
  12. DIANEAL [Suspect]
     Route: 033
     Dates: start: 20120409
  13. LEVETIRACETAM [Concomitant]
     Route: 048
  14. FUROSEMIDE [Concomitant]
     Route: 048

REACTIONS (1)
  - GRAND MAL CONVULSION [None]
